FAERS Safety Report 19882138 (Version 5)
Quarter: 2022Q1

REPORT INFORMATION
  Report Type: Report from Study
  Country: US (occurrence: US)
  Receive Date: 20210924
  Receipt Date: 20220307
  Transmission Date: 20220423
  Serious: Yes (Other)
  Sender: FDA-Public Use
  Company Number: US-NOVARTISTESTPH-NVSC2021US216764

PATIENT
  Sex: Female

DRUGS (1)
  1. COSENTYX [Suspect]
     Active Substance: SECUKINUMAB
     Indication: Psoriasis
     Dosage: 300 MG(ONCE A WEEK FOR 5 WEEKS AND THEN Q4W)
     Route: 058

REACTIONS (13)
  - Rheumatoid arthritis [Unknown]
  - Infection parasitic [Unknown]
  - Weight decreased [Unknown]
  - Lethargy [Unknown]
  - Fatigue [Unknown]
  - Musculoskeletal stiffness [Unknown]
  - Anxiety [Not Recovered/Not Resolved]
  - Malaise [Unknown]
  - Pain [Unknown]
  - Joint swelling [Unknown]
  - Dyspnoea [Unknown]
  - Scar [Unknown]
  - Chronic obstructive pulmonary disease [Unknown]
